FAERS Safety Report 13168559 (Version 1)
Quarter: 2017Q1

REPORT INFORMATION
  Report Type: Spontaneous
  Country: DE (occurrence: DE)
  Receive Date: 20170131
  Receipt Date: 20170131
  Transmission Date: 20170428
  Serious: Yes (Death, Other)
  Sender: FDA-Public Use
  Company Number: DE-GLAXOSMITHKLINE-DE2017GSK013568

PATIENT
  Age: 46 Year
  Sex: Male

DRUGS (2)
  1. TRAMADOL. [Suspect]
     Active Substance: TRAMADOL
     Indication: SUICIDE ATTEMPT
  2. NICOTINE. [Suspect]
     Active Substance: NICOTINE
     Indication: SUICIDE ATTEMPT
     Dosage: 25 DF, UNK
     Route: 062

REACTIONS (13)
  - Cardiopulmonary failure [Fatal]
  - Pulmonary congestion [Unknown]
  - Depressed level of consciousness [Fatal]
  - Haemothorax [Unknown]
  - Myocardial infarction [Unknown]
  - Cerebral congestion [Unknown]
  - Hyperaemia [Fatal]
  - Haemothorax [Fatal]
  - Pulmonary oedema [Unknown]
  - Toxicity to various agents [Unknown]
  - Brain oedema [Fatal]
  - Conjunctival haemorrhage [Fatal]
  - Myocardial ischaemia [Unknown]
